FAERS Safety Report 16084671 (Version 1)
Quarter: 2019Q1

REPORT INFORMATION
  Report Type: Spontaneous
  Country: US (occurrence: US)
  Receive Date: 20190318
  Receipt Date: 20190318
  Transmission Date: 20190418
  Serious: No
  Sender: FDA-Public Use
  Company Number: US-TEVA-2019-US-1016870

PATIENT
  Age: 56 Year
  Sex: Female

DRUGS (1)
  1. LETROZOLE TEVA [Suspect]
     Active Substance: LETROZOLE
     Indication: INFLAMMATORY CARCINOMA OF THE BREAST
     Dosage: 2.5MG TABLET BY MOUTH DAILY
     Route: 048
     Dates: start: 2015, end: 201607

REACTIONS (3)
  - Weight increased [Unknown]
  - Joint swelling [Unknown]
  - Drug ineffective [Unknown]

NARRATIVE: CASE EVENT DATE: 201607
